FAERS Safety Report 9523863 (Version 1)
Quarter: 2013Q1

REPORT INFORMATION
  Report Type: Spontaneous
  Country: US (occurrence: None)
  Receive Date: 20130305
  Receipt Date: 20130305
  Transmission Date: 20140127
  Serious: Yes (Hospitalization)
  Sender: FDA-Public Use
  Company Number: 163-21880-12020423

PATIENT
  Age: 78 Year
  Sex: Female

DRUGS (4)
  1. REVLIMID (LENALIDOMIDE) (CAPSULES) [Suspect]
     Indication: PLASMA CELL MYELOMA
     Dosage: 25 MG, QD X 21D/28D, PO
     Route: 048
     Dates: start: 20120113
  2. DECADRON [Concomitant]
  3. AREDIA (PHAMIDRONATE DISODIUM) (UNKNOWN) [Concomitant]
  4. CEFTAZIDINE (CEFTAZIDIME) (UNKNOWN) [Concomitant]

REACTIONS (3)
  - Chills [None]
  - Pyrexia [None]
  - Asthenia [None]
